FAERS Safety Report 6061495-3 (Version None)
Quarter: 2009Q1

REPORT INFORMATION
  Report Type: 
  Country: None (occurrence: None)
  Receive Date: 20090202
  Receipt Date: 20090122
  Transmission Date: 20090719
  Serious: Yes (Life-Threatening, Other)
  Sender: FDA-Public Use
  Company Number: JP-ROCHE-606880

PATIENT
  Sex: Male
  Weight: 66 kg

DRUGS (7)
  1. XELODA [Suspect]
     Indication: RECTAL CANCER METASTATIC
     Dosage: DRUG REPORTED AS XELODA 300
     Route: 048
     Dates: start: 20081026, end: 20081213
  2. BEZAFIBRATE [Concomitant]
     Dosage: DRUG REPORTED AS VESTURIT
     Route: 048
     Dates: end: 20081208
  3. METFORMIN HYDROCHLORIDE [Concomitant]
     Dosage: DRUG REPORTED AS METRION
     Route: 048
     Dates: end: 20081208
  4. NITRENDIPINE [Concomitant]
     Dosage: DRUG REPORTED AS BALODIPINE
     Route: 048
     Dates: end: 20081208
  5. VOGLIBOSE [Concomitant]
     Dosage: DRUG REPORTED AS BAYSLOWTH
     Route: 048
     Dates: end: 20081208
  6. PYDOXAL [Concomitant]
     Dosage: DRUG REPORTED AS PYDOXAL TAB 30 MG
     Route: 048
     Dates: start: 20081026, end: 20081213
  7. TAGAMET [Concomitant]
     Route: 048
     Dates: start: 20081026, end: 20081213

REACTIONS (6)
  - BONE MARROW FAILURE [None]
  - DISSEMINATED INTRAVASCULAR COAGULATION [None]
  - GASTROINTESTINAL MUCOSAL DISORDER [None]
  - MUCOUS MEMBRANE DISORDER [None]
  - OESOPHAGITIS [None]
  - ORAL DISORDER [None]
